FAERS Safety Report 24543591 (Version 1)
Quarter: 2024Q4

REPORT INFORMATION
  Report Type: Spontaneous
  Country: CN (occurrence: CN)
  Receive Date: 20241024
  Receipt Date: 20241024
  Transmission Date: 20250115
  Serious: Yes (Other)
  Sender: SPECGX
  Company Number: CN-SPECGX-T202402089

PATIENT
  Age: 52 Year
  Sex: Male
  Weight: 90 kg

DRUGS (2)
  1. TYLOX [Suspect]
     Active Substance: ACETAMINOPHEN\OXYCODONE HYDROCHLORIDE
     Indication: Analgesic therapy
     Dosage: 1 DOSAGE FORM, Q6H
     Route: 048
     Dates: start: 20240921, end: 20240923
  2. GABAPENTIN [Concomitant]
     Active Substance: GABAPENTIN
     Indication: Analgesic therapy
     Dosage: 0.3 GRAM, Q8H
     Route: 048
     Dates: start: 20240921, end: 20240923

REACTIONS (3)
  - Discomfort [Recovered/Resolved]
  - Nausea [Recovered/Resolved]
  - Vomiting [Recovered/Resolved]

NARRATIVE: CASE EVENT DATE: 20240922
